FAERS Safety Report 26179884 (Version 1)
Quarter: 2025Q4

REPORT INFORMATION
  Report Type: Spontaneous
  Country: US (occurrence: None)
  Receive Date: 20251219
  Receipt Date: 20251219
  Transmission Date: 20260117
  Serious: Yes (Other)
  Sender: FDA-CTU
  Company Number: None

PATIENT
  Sex: Male

DRUGS (4)
  1. MYCOPHENOLATE MOFETIL [Suspect]
     Active Substance: MYCOPHENOLATE MOFETIL
     Indication: Type 2 diabetes mellitus
     Dosage: OTHER FREQUENCY : 1000IN THE MORNING 1000 IN THE EVENING ;?FREQ: TAKE 2 TABLETS (1,000 MG TOTAL) BY MOUTH IN THE MORNING AND 2 TABLETS (1,000 MG TOTAL) IN THE ?EVENING.
     Dates: start: 20210807
  2. MYCOPHENOLATE MOFETIL [Suspect]
     Active Substance: MYCOPHENOLATE MOFETIL
     Indication: Diabetic neuropathy
  3. TACROLIMUS [Concomitant]
     Active Substance: TACROLIMUS
  4. TACROLIMUS A [Concomitant]

REACTIONS (1)
  - Coronary artery bypass [None]
